FAERS Safety Report 8984043 (Version 1)
Quarter: 2012Q4

REPORT INFORMATION
  Report Type: Spontaneous
  Country: US (occurrence: None)
  Receive Date: 20121214
  Receipt Date: 20121214
  Transmission Date: 20130627
  Serious: Yes (Hospitalization)
  Sender: FDA-Public Use
  Company Number: 139114

PATIENT
  Age: 10 Year
  Sex: Male

DRUGS (1)
  1. DAUNORUBICIN HCL [Suspect]
     Indication: ACUTE LYMPHOCYTIC LEUKEMIA
     Dates: start: 20120804, end: 20120804

REACTIONS (15)
  - Stomatitis [None]
  - Febrile neutropenia [None]
  - Bacteraemia [None]
  - Mucosal infection [None]
  - Convulsion [None]
  - Pulmonary oedema [None]
  - Cardiac failure congestive [None]
  - Dehydration [None]
  - Vomiting [None]
  - Abdominal pain [None]
  - Diarrhoea [None]
  - Headache [None]
  - Klebsiella test positive [None]
  - Hypokalaemia [None]
  - Lung infection [None]
